FAERS Safety Report 7377272-7 (Version None)
Quarter: 2011Q1

REPORT INFORMATION
  Report Type: 
  Country: None (occurrence: None)
  Receive Date: 20110328
  Receipt Date: 20110314
  Transmission Date: 20110831
  Serious: Yes (Other)
  Sender: FDA-Public Use
  Company Number: US-JNJFOC-20110308928

PATIENT
  Sex: Female
  Weight: 79.36 kg

DRUGS (2)
  1. MOTRIN IB [Suspect]
     Indication: PAIN
     Route: 048
  2. MOTRIN IB [Suspect]
     Indication: PYREXIA
     Route: 048

REACTIONS (2)
  - URTICARIA [None]
  - HYPERSENSITIVITY [None]
